FAERS Safety Report 8199357-8 (Version None)
Quarter: 2012Q1

REPORT INFORMATION
  Report Type: 
  Country: None (occurrence: None)
  Receive Date: 20120309
  Receipt Date: 20120307
  Transmission Date: 20120608
  Serious: Yes (Other)
  Sender: FDA-Public Use
  Company Number: CA-PFIZER INC-2012061972

PATIENT
  Age: 66 Year
  Sex: Male

DRUGS (2)
  1. VARENICLINE TARTRATE [Suspect]
     Dosage: UNK
  2. VARENICLINE TARTRATE [Suspect]
     Dosage: PARTIAL DOSES
     Dates: start: 20110901

REACTIONS (9)
  - SUICIDAL IDEATION [None]
  - ABNORMAL BEHAVIOUR [None]
  - MENTAL DISORDER [None]
  - NIGHTMARE [None]
  - HOMICIDAL IDEATION [None]
  - PARANOIA [None]
  - ALCOHOLIC [None]
  - EMOTIONAL DISORDER [None]
  - ABNORMAL DREAMS [None]
